FAERS Safety Report 7367821-7 (Version None)
Quarter: 2011Q1

REPORT INFORMATION
  Report Type: 
  Country: None (occurrence: None)
  Receive Date: 20110322
  Receipt Date: 20110307
  Transmission Date: 20110831
  Serious: Yes (Hospitalization, Other)
  Sender: FDA-Public Use
  Company Number: FR-GENENTECH-307950

PATIENT
  Sex: Female

DRUGS (7)
  1. BIPRETERAX [Concomitant]
     Indication: PRODUCT USED FOR UNKNOWN INDICATION
     Dosage: UNK
     Dates: start: 20050101
  2. CHRONADALATE [Concomitant]
     Indication: PRODUCT USED FOR UNKNOWN INDICATION
     Dosage: UNK
     Dates: start: 20050101
  3. XOLAIR [Suspect]
     Indication: ASTHMA
     Dosage: 375 MG, Q2W
     Dates: start: 20071101
  4. SERETIDE DISKUS [Suspect]
     Dosage: UNK
  5. SINGULAIR [Suspect]
     Indication: ASTHMA
     Dosage: UNK
     Route: 048
     Dates: start: 20060101
  6. INIPOMP [Concomitant]
     Indication: PRODUCT USED FOR UNKNOWN INDICATION
     Dosage: 40 MG, UNK
     Dates: start: 20071101
  7. SERETIDE DISKUS [Suspect]
     Indication: ASTHMA
     Dosage: 2 PUFF, QD
     Dates: start: 20030101, end: 20071101

REACTIONS (2)
  - HIATUS HERNIA [None]
  - BREAST CANCER [None]
